FAERS Safety Report 8957732 (Version 2)
Quarter: 2013Q4

REPORT INFORMATION
  Report Type: Spontaneous
  Country: US (occurrence: US)
  Receive Date: 20121210
  Receipt Date: 20131219
  Transmission Date: 20140711
  Serious: Yes (Other)
  Sender: FDA-Public Use
  Company Number: US-PFIZER INC-2011272792

PATIENT
  Age: 56 Year
  Sex: Male

DRUGS (1)
  1. PRISTIQ [Suspect]
     Dosage: 50 MG, 1X/DAY
     Route: 048

REACTIONS (2)
  - Alcohol detoxification [Unknown]
  - Therapeutic response unexpected [Unknown]
